FAERS Safety Report 14631746 (Version 5)
Quarter: 2020Q2

REPORT INFORMATION
  Report Type: Spontaneous
  Country: TW (occurrence: TW)
  Receive Date: 20180313
  Receipt Date: 20200513
  Transmission Date: 20200713
  Serious: Yes (Hospitalization)
  Sender: FDA-Public Use
  Company Number: TW-ACTELION-A-CH2018-168851

PATIENT
  Age: 68 Year
  Sex: Female
  Weight: 45.3 kg

DRUGS (7)
  1. RIVAROXABAN [Concomitant]
     Active Substance: RIVAROXABAN
     Dosage: 10 MG, QD
  2. VENTAVIS [Concomitant]
     Active Substance: ILOPROST
     Dosage: 20 MG, Q4HRS
     Dates: start: 20190428
  3. OPSUMIT [Suspect]
     Active Substance: MACITENTAN
     Indication: PULMONARY ARTERIAL HYPERTENSION
     Dosage: 10 MG, QD
     Route: 048
     Dates: start: 20160913
  4. AMILORIDE [Concomitant]
     Active Substance: AMILORIDE
     Indication: DIURETIC THERAPY
     Dosage: UNK, PRN
  5. OXYGEN. [Concomitant]
     Active Substance: OXYGEN
  6. FUROSEMIDE. [Concomitant]
     Active Substance: FUROSEMIDE
     Dosage: 40 MG, BID
  7. ADEMPAS [Concomitant]
     Active Substance: RIOCIGUAT
     Indication: PULMONARY EMBOLISM
     Dosage: 1 MG, TID
     Route: 048
     Dates: start: 20170801

REACTIONS (7)
  - Pneumonia [Recovered/Resolved]
  - Cardiac failure [Unknown]
  - Oxygen saturation decreased [Unknown]
  - Oedema peripheral [Unknown]
  - Dyspnoea [Unknown]
  - Tachypnoea [Unknown]
  - Heart rate increased [Unknown]

NARRATIVE: CASE EVENT DATE: 20180307
